FAERS Safety Report 7075212-1 (Version None)
Quarter: 2010Q4

REPORT INFORMATION
  Report Type: 
  Country: None (occurrence: None)
  Receive Date: 20101030
  Receipt Date: 20100604
  Transmission Date: 20110411
  Serious: No
  Sender: FDA-Public Use
  Company Number: US-WYE-H15329910

PATIENT
  Age: 45 Year
  Sex: Female
  Weight: 49.49 kg

DRUGS (2)
  1. ADVIL PM [Suspect]
     Indication: PAIN
     Dosage: 2 TABLET EVERY 1 PRN
     Route: 048
     Dates: start: 20100101
  2. ADVIL PM [Suspect]
     Indication: INSOMNIA

REACTIONS (1)
  - DRUG INEFFECTIVE [None]
